FAERS Safety Report 6609238-6 (Version None)
Quarter: 2010Q1

REPORT INFORMATION
  Report Type: 
  Country: None (occurrence: None)
  Receive Date: 20100301
  Receipt Date: 20100215
  Transmission Date: 20100710
  Serious: Yes (Other)
  Sender: FDA-Public Use
  Company Number: GB-MYLANLABS-2010S1002513

PATIENT
  Age: 21 Year
  Sex: Male

DRUGS (2)
  1. VENLAFAXINE [Suspect]
     Indication: DEPRESSION
     Route: 048
     Dates: start: 20100118, end: 20100118
  2. VENLAFAXINE [Suspect]
     Indication: SOCIAL PHOBIA
     Route: 048
     Dates: start: 20100118, end: 20100118

REACTIONS (6)
  - AGITATION [None]
  - FEAR [None]
  - HALLUCINATION [None]
  - MYDRIASIS [None]
  - TACHYCARDIA [None]
  - VISUAL IMPAIRMENT [None]
